FAERS Safety Report 25249856 (Version 1)
Quarter: 2025Q2

REPORT INFORMATION
  Report Type: Spontaneous
  Country: US (occurrence: US)
  Receive Date: 20250429
  Receipt Date: 20250429
  Transmission Date: 20250716
  Serious: Yes (Other)
  Sender: XGEN PHARMACEUTICALS DJB, INC.
  Company Number: US-XGen Pharmaceuticals DJB, Inc.-2175763

PATIENT
  Age: 25 Year
  Sex: Female

DRUGS (1)
  1. FOLIC ACID [Suspect]
     Active Substance: FOLIC ACID
     Dates: start: 20250416, end: 20250416

REACTIONS (1)
  - Hypersensitivity [Unknown]

NARRATIVE: CASE EVENT DATE: 20250416
